FAERS Safety Report 12896497 (Version 1)
Quarter: 2016Q4

REPORT INFORMATION
  Report Type: Report from Study
  Country: US (occurrence: US)
  Receive Date: 20161031
  Receipt Date: 20161031
  Transmission Date: 20170207
  Serious: No
  Sender: FDA-Public Use
  Company Number: PHEH2016US027965

PATIENT
  Sex: Female

DRUGS (1)
  1. COSENTYX [Suspect]
     Active Substance: SECUKINUMAB
     Indication: PRODUCT USED FOR UNKNOWN INDICATION
     Dosage: 2 DF, UNK\ TWICE A MONTH
     Route: 065
     Dates: start: 20160301

REACTIONS (5)
  - Inappropriate schedule of drug administration [Unknown]
  - Arthralgia [Unknown]
  - Fatigue [Unknown]
  - Musculoskeletal pain [Unknown]
  - Exercise tolerance decreased [Unknown]
